FAERS Safety Report 12376683 (Version 2)
Quarter: 2016Q2

REPORT INFORMATION
  Report Type: Spontaneous
  Country: US (occurrence: US)
  Receive Date: 20160517
  Receipt Date: 20160517
  Transmission Date: 20160815
  Serious: No
  Sender: FDA-Public Use
  Company Number: US-MALLINCKRODT-T201502713

PATIENT
  Age: 72 Year
  Sex: Female
  Weight: 87 kg

DRUGS (9)
  1. ALPRAZOLAM. [Concomitant]
     Active Substance: ALPRAZOLAM
  2. H.P. ACTHAR [Suspect]
     Active Substance: CORTICOTROPIN
     Indication: MULTIPLE SCLEROSIS RELAPSE
     Dosage: 80 UNITS, ONCE DAILY FOR 5 DAYS
     Route: 058
     Dates: start: 20150511, end: 20150515
  3. CRANBERRY. [Concomitant]
     Active Substance: CRANBERRY
  4. ADDERALL [Concomitant]
     Active Substance: AMPHETAMINE ASPARTATE\AMPHETAMINE SULFATE\DEXTROAMPHETAMINE SACCHARATE\DEXTROAMPHETAMINE SULFATE
  5. VITAMIN D [Concomitant]
     Active Substance: CHOLECALCIFEROL
  6. FISH OIL [Concomitant]
     Active Substance: FISH OIL
  7. COQ10 [Concomitant]
     Active Substance: UBIDECARENONE
  8. BACLOFEN. [Concomitant]
     Active Substance: BACLOFEN
  9. DICLOFENAC [Concomitant]
     Active Substance: DICLOFENAC

REACTIONS (3)
  - Fatigue [Recovering/Resolving]
  - Malaise [Recovering/Resolving]
  - Generalised oedema [Recovering/Resolving]

NARRATIVE: CASE EVENT DATE: 20150516
